FAERS Safety Report 6560834-4 (Version None)
Quarter: 2010Q1

REPORT INFORMATION
  Report Type: 
  Country: None (occurrence: None)
  Receive Date: 20100129
  Receipt Date: 20090925
  Transmission Date: 20100710
  Serious: No
  Sender: FDA-Public Use
  Company Number: US-ABBOTT-09P-163-0599552-00

PATIENT
  Sex: Female
  Weight: 61.29 kg

DRUGS (3)
  1. HUMIRA [Suspect]
     Indication: CROHN'S DISEASE
     Route: 058
     Dates: start: 20080501
  2. FOLIC ACID [Concomitant]
     Indication: MEDICAL DIET
     Route: 048
  3. FLINSTONE MULTIVITAMIN W/IRON [Concomitant]
     Indication: MEDICAL DIET
     Route: 048

REACTIONS (3)
  - NAUSEA [None]
  - TOOTH LOSS [None]
  - WEIGHT INCREASED [None]
